FAERS Safety Report 10090616 (Version 1)
Quarter: 2014Q2

REPORT INFORMATION
  Report Type: Spontaneous
  Country: US (occurrence: US)
  Receive Date: 20140421
  Receipt Date: 20140421
  Transmission Date: 20141212
  Serious: No
  Sender: FDA-Public Use
  Company Number: US-FRI-1000066531

PATIENT
  Age: 67 Year
  Sex: Female
  Weight: 116.12 kg

DRUGS (4)
  1. SAPHRIS [Suspect]
     Indication: BIPOLAR DISORDER
     Dosage: 5 MG
     Dates: start: 201402, end: 2014
  2. SAPHRIS [Suspect]
     Dosage: 10 MG
     Dates: start: 2014, end: 2014
  3. SAPHRIS [Suspect]
     Dosage: 20 MG
     Dates: start: 2014, end: 2014
  4. SAPHRIS [Suspect]
     Dosage: 20 MG
     Dates: start: 2014

REACTIONS (9)
  - Dyspnoea [Not Recovered/Not Resolved]
  - Speech disorder [Not Recovered/Not Resolved]
  - Aphasia [Not Recovered/Not Resolved]
  - Weight increased [Not Recovered/Not Resolved]
  - Unevaluable event [Not Recovered/Not Resolved]
  - Coordination abnormal [Not Recovered/Not Resolved]
  - Motor dysfunction [Not Recovered/Not Resolved]
  - Asthenia [Not Recovered/Not Resolved]
  - Dysgraphia [Not Recovered/Not Resolved]
